FAERS Safety Report 6431645-5 (Version None)
Quarter: 2009Q4

REPORT INFORMATION
  Report Type: 
  Country: None (occurrence: None)
  Receive Date: 20091103
  Receipt Date: 20091019
  Transmission Date: 20100525
  Serious: Yes (Hospitalization)
  Sender: FDA-Public Use
  Company Number: 02100-JPN-07-0772

PATIENT
  Age: 80 Year
  Sex: Female
  Weight: 66.5 kg

DRUGS (14)
  1. PLETAL [Suspect]
     Indication: CEREBRAL INFARCTION
     Dosage: #1 100 MG, BID, #1 ORAL
     Route: 048
     Dates: start: 20060117, end: 20071129
  2. TECHNIS (IFENPRODIL TARTRATE) TABLET [Concomitant]
  3. TERNELIN (TIZANIDINE HYDROCHLOROIDE) [Concomitant]
  4. AZULENE-GLUTAMINE FINE GRANULE (SODIUM AZULENE SULFONATE/L-GLUTAMINE) [Concomitant]
  5. ALESION (EPINASTINE HYDROCHLORIDE) [Concomitant]
  6. CALONAL (PARACETAMOL) GRANULE [Concomitant]
  7. MS ONSHIPPU (CATAPLASMATA) PATCH [Concomitant]
  8. LOXONIN (LOXOPROFEN SODIUM) TABLET; [Concomitant]
  9. MUCOSTA (REBAMIPIDE) TABLET; [Concomitant]
  10. ARTZ DISPO (SODIUM HYALURONATE) INJECTION [Concomitant]
  11. ADOFEED (FLURBIPROFEN) [Concomitant]
  12. DEPAS (ETIZOLAM) TABLET; [Concomitant]
  13. ZOLPIDEM TARTRATE [Concomitant]
  14. UNSPECIFIED DRUG (UNSPECIFIED DRUG) [Concomitant]

REACTIONS (4)
  - CEREBRAL INFARCTION [None]
  - DISEASE RECURRENCE [None]
  - DRUG INEFFECTIVE [None]
  - FALL [None]
